FAERS Safety Report 4865329-1 (Version None)
Quarter: 2005Q4

REPORT INFORMATION
  Report Type: 
  Country: None (occurrence: None)
  Receive Date: 20051223
  Receipt Date: 20051103
  Transmission Date: 20060501
  Serious: Yes (Other)
  Sender: FDA-Public Use
  Company Number: US-AVENTIS-200520189US

PATIENT
  Sex: Female
  Weight: 54.4 kg

DRUGS (3)
  1. BENZACLIN [Suspect]
     Indication: ACNE
     Route: 061
     Dates: start: 20020101, end: 20050501
  2. FLAGYL [Suspect]
     Indication: ANAL FISSURE
     Dosage: DOSE: UNK
  3. FLAGYL [Suspect]
     Indication: INFECTION PROPHYLAXIS
     Dosage: DOSE: UNK

REACTIONS (10)
  - ABDOMINAL DISTENSION [None]
  - ABDOMINAL PAIN [None]
  - ANAL FISSURE [None]
  - CONSTIPATION [None]
  - DIARRHOEA [None]
  - HAEMORRHAGE [None]
  - IRRITABLE BOWEL SYNDROME [None]
  - NEUROPATHY PERIPHERAL [None]
  - PAIN IN EXTREMITY [None]
  - PROCTALGIA [None]
